FAERS Safety Report 9125728 (Version 2)
Quarter: 2013Q3

REPORT INFORMATION
  Report Type: Spontaneous
  Country: FR (occurrence: FR)
  Receive Date: 20130228
  Receipt Date: 20130719
  Transmission Date: 20140515
  Serious: Yes (Disabling, Other)
  Sender: FDA-Public Use
  Company Number: FR-AMGEN-FRASP2013012130

PATIENT
  Age: 28 Year
  Sex: Male

DRUGS (8)
  1. NEUPOGEN [Suspect]
     Indication: PRODUCT USED FOR UNKNOWN INDICATION
     Dosage: UNK
     Route: 065
     Dates: end: 200901
  2. CORTICOSTEROIDS [Suspect]
     Indication: APLASIA
     Dosage: UNK
     Dates: start: 200803
  3. NEORAL [Concomitant]
     Indication: APLASIA
     Dosage: 5 MG/KG, 2 DOSES/D FROM D1
     Dates: end: 200901
  4. ATG RABBIT [Concomitant]
     Indication: APLASIA
     Dosage: 298.2 MG/DAY, D1 TO D5
     Dates: start: 20080318
  5. SOLU MEDROL [Concomitant]
     Indication: APLASIA
     Dosage: 230 MG/DAY FROM D1 TO D5
     Dates: start: 20080318, end: 20080323
  6. SOLU MEDROL [Concomitant]
     Dosage: 1 MG/KG/DAY, FROM D6 TO D14
     Dates: start: 20080324
  7. SOLU MEDROL [Concomitant]
     Dosage: 40 MG/DAY, FROM D15 TO D23
  8. SOLU MEDROL [Concomitant]
     Dosage: 20 MG, FROM D24 TO D29

REACTIONS (7)
  - Osteonecrosis [Unknown]
  - Disability [Unknown]
  - Joint range of motion decreased [Unknown]
  - Gait disturbance [Unknown]
  - Walking aid user [Unknown]
  - General physical health deterioration [Unknown]
  - C-reactive protein increased [Unknown]
